FAERS Safety Report 9786735 (Version 1)
Quarter: 2013Q4

REPORT INFORMATION
  Report Type: Spontaneous
  Country: IT (occurrence: IT)
  Receive Date: 20131227
  Receipt Date: 20131227
  Transmission Date: 20140711
  Serious: Yes (Other)
  Sender: FDA-Public Use
  Company Number: IT-BAXTER-2013BAX051832

PATIENT
  Age: 51 Year
  Sex: Male

DRUGS (2)
  1. BREVIBLOC [Suspect]
     Indication: HEART RATE ABNORMAL
     Route: 042
     Dates: start: 20131106, end: 20131106
  2. IOMERON [Suspect]
     Indication: COMPUTERISED TOMOGRAM
     Route: 042
     Dates: start: 20131106, end: 20131106

REACTIONS (6)
  - Skin reaction [Recovering/Resolving]
  - Erythema [Recovering/Resolving]
  - Skin swelling [Recovering/Resolving]
  - Urticaria [Recovering/Resolving]
  - Paraesthesia [Recovering/Resolving]
  - Pruritus [Recovering/Resolving]
